FAERS Safety Report 24570438 (Version 4)
Quarter: 2024Q4

REPORT INFORMATION
  Report Type: Report from Study
  Country: US (occurrence: US)
  Receive Date: 20241031
  Receipt Date: 20241223
  Transmission Date: 20250114
  Serious: Yes (Hospitalization)
  Sender: JOHNSON AND JOHNSON
  Company Number: US-JNJFOC-20240974845

PATIENT
  Age: 49 Year
  Sex: Female

DRUGS (24)
  1. MACITENTAN [Suspect]
     Active Substance: MACITENTAN
     Indication: Product used for unknown indication
     Route: 048
  2. MACITENTAN [Suspect]
     Active Substance: MACITENTAN
     Indication: Pulmonary arterial hypertension
     Route: 048
     Dates: start: 20240926, end: 20241003
  3. MACITENTAN [Suspect]
     Active Substance: MACITENTAN
     Route: 048
  4. REMODULIN [Suspect]
     Active Substance: TREPROSTINIL
     Indication: Product used for unknown indication
     Route: 065
     Dates: start: 2024
  5. LASIX [Concomitant]
     Active Substance: FUROSEMIDE
  6. KETAMINE [Concomitant]
     Active Substance: KETAMINE
  7. SILDENAFIL CITRATE [Concomitant]
     Active Substance: SILDENAFIL CITRATE
  8. POTASSIUM CHLORIDE [Concomitant]
     Active Substance: POTASSIUM CHLORIDE
  9. ALDACTONE [Concomitant]
     Active Substance: SPIRONOLACTONE
  10. TRAMADOL [Concomitant]
     Active Substance: TRAMADOL
  11. SOTATERCEPT [Concomitant]
     Active Substance: SOTATERCEPT
  12. CLONIDINE [Concomitant]
     Active Substance: CLONIDINE
  13. KETOPROFEN [Concomitant]
     Active Substance: KETOPROFEN
  14. ASPIRIN [Concomitant]
     Active Substance: ASPIRIN
  15. OXYGEN [Concomitant]
     Active Substance: OXYGEN
  16. BUSPIRONE [Concomitant]
     Active Substance: BUSPIRONE HYDROCHLORIDE
  17. MAGNESSIUM CARBONATE [Concomitant]
  18. ONDANSETRON [Concomitant]
     Active Substance: ONDANSETRON
  19. GABAPENTIN [Concomitant]
     Active Substance: GABAPENTIN
  20. AMITRIPTYLINE [Concomitant]
     Active Substance: AMITRIPTYLINE
  21. POLOXAMER [Concomitant]
     Active Substance: POLOXAMER
  22. AMBRISENTAN [Concomitant]
     Active Substance: AMBRISENTAN
  23. LIDOCAINE HYDROCHLORIDE [Concomitant]
     Active Substance: LIDOCAINE HYDROCHLORIDE
  24. LECITHIN [Concomitant]
     Active Substance: LECITHIN

REACTIONS (10)
  - Hospitalisation [Unknown]
  - Suture insertion [Unknown]
  - Loss of consciousness [Unknown]
  - Upper respiratory tract infection [Unknown]
  - Eye infection [Unknown]
  - Sinusitis [Unknown]
  - Headache [Unknown]
  - Peripheral swelling [Recovered/Resolved]
  - Catheter site pruritus [Recovered/Resolved]
  - Depression [Recovered/Resolved]
